FAERS Safety Report 5120051-1 (Version None)
Quarter: 2006Q3

REPORT INFORMATION
  Report Type: 
  Country: None (occurrence: None)
  Receive Date: 20060929
  Receipt Date: 20060912
  Transmission Date: 20061208
  Serious: Yes (Other)
  Sender: FDA-Public Use
  Company Number: 14742

PATIENT
  Age: 24 Month
  Sex: Female

DRUGS (10)
  1. AMIODARONE [Suspect]
     Indication: VENTRICULAR ARRHYTHMIA
  2. SIROLIMUS [Suspect]
     Indication: IMMUNOSUPPRESSION
     Dosage: 1 MG QD PO
     Route: 048
  3. SIROLIMUS [Suspect]
     Indication: IMMUNOSUPPRESSION
     Dosage: 2 MG QD PO
     Route: 048
  4. SIROLIMUS [Suspect]
     Indication: IMMUNOSUPPRESSION
     Dosage: 0.5 MG QD PO
     Route: 048
  5. SIROLIMUS [Suspect]
     Indication: IMMUNOSUPPRESSION
     Dosage: 0.3 MG QD PO
     Route: 048
  6. TACROLIMUS [Suspect]
     Indication: IMMUNOSUPPRESSION
     Dosage: 0.8 MG BID PO
     Route: 048
  7. TACROLIMUS [Suspect]
     Indication: IMMUNOSUPPRESSION
     Dosage: 0.02 MG/KG QD PO
     Route: 048
  8. MYCOPHENOLATE MOFETIL [Concomitant]
  9. NADOLOL [Concomitant]
  10. PREDNISOLONE [Concomitant]

REACTIONS (18)
  - ALANINE AMINOTRANSFERASE INCREASED [None]
  - ANAEMIA [None]
  - ASPARTATE AMINOTRANSFERASE INCREASED [None]
  - BILIRUBIN CONJUGATED INCREASED [None]
  - BLOOD ALBUMIN INCREASED [None]
  - CARDIAC FAILURE CONGESTIVE [None]
  - CORONARY ARTERY DISEASE [None]
  - DILATATION VENTRICULAR [None]
  - DRUG INTERACTION [None]
  - DRUG LEVEL INCREASED [None]
  - HEPATIC FUNCTION ABNORMAL [None]
  - INTERNATIONAL NORMALISED RATIO INCREASED [None]
  - ISCHAEMIA [None]
  - LIPIDS INCREASED [None]
  - RENAL IMPAIRMENT [None]
  - VENTRICULAR DYSFUNCTION [None]
  - VENTRICULAR TACHYCARDIA [None]
  - WHITE BLOOD CELL COUNT DECREASED [None]
